FAERS Safety Report 13786757 (Version 1)
Quarter: 2017Q3

REPORT INFORMATION
  Report Type: Spontaneous
  Country: US (occurrence: US)
  Receive Date: 20170725
  Receipt Date: 20170725
  Transmission Date: 20171127
  Serious: No
  Sender: FDA-Public Use
  Company Number: US-JNJFOC-20170609644

PATIENT
  Age: 9 Decade
  Sex: Female

DRUGS (4)
  1. TYLENOL PM [Concomitant]
     Active Substance: ACETAMINOPHEN\DIPHENHYDRAMINE
     Indication: SLEEP DISORDER THERAPY
     Dosage: 2 MONTHS
     Route: 065
  2. TYLENOL PM [Concomitant]
     Active Substance: ACETAMINOPHEN\DIPHENHYDRAMINE
     Indication: PAIN
     Dosage: 2 MONTHS
     Route: 065
  3. TYLENOL [Suspect]
     Active Substance: ACETAMINOPHEN
     Indication: PAIN
     Dosage: DOSE: 1-5 TABLETS
     Route: 048
     Dates: start: 2017
  4. TYLENOL [Suspect]
     Active Substance: ACETAMINOPHEN
     Indication: ARTHRITIS
     Dosage: DOSE: 1-5 TABLETS
     Route: 048
     Dates: start: 2017

REACTIONS (3)
  - Incorrect dose administered [Unknown]
  - Inappropriate schedule of drug administration [Unknown]
  - Drug administration error [Unknown]

NARRATIVE: CASE EVENT DATE: 2017
